FAERS Safety Report 5221031-8 (Version None)
Quarter: 2007Q1

REPORT INFORMATION
  Report Type: 
  Country: None (occurrence: None)
  Receive Date: 20070126
  Receipt Date: 20070115
  Transmission Date: 20070707
  Serious: Yes (Hospitalization)
  Sender: FDA-Public Use
  Company Number: JP-MERCK-0701USA02265

PATIENT

DRUGS (3)
  1. COZAAR [Suspect]
     Route: 048
     Dates: start: 20061114, end: 20061212
  2. LASIX [Suspect]
     Route: 048
  3. ALDACTONE [Suspect]
     Route: 048

REACTIONS (7)
  - ADVERSE EVENT [None]
  - BLOOD ALDOSTERONE INCREASED [None]
  - DEPRESSED LEVEL OF CONSCIOUSNESS [None]
  - DRUG INEFFECTIVE [None]
  - MALAISE [None]
  - RENIN INCREASED [None]
  - VISION BLURRED [None]
